FAERS Safety Report 5562929-0 (Version None)
Quarter: 2007Q4

REPORT INFORMATION
  Report Type: 
  Country: None (occurrence: None)
  Receive Date: 20071211
  Receipt Date: 20071211
  Transmission Date: 20080405
  Serious: Yes (Hospitalization)
  Sender: FDA-Public Use
  Company Number: None

PATIENT
  Sex: Male
  Weight: 99.7913 kg

DRUGS (1)
  1. CHANTIX [Suspect]
     Indication: SMOKING CESSATION THERAPY
     Dosage: 1MG 2 TIMES A DAY PO
     Route: 048
     Dates: start: 20071010, end: 20071123

REACTIONS (18)
  - ANGER [None]
  - ANXIETY [None]
  - BALANCE DISORDER [None]
  - DEPRESSION [None]
  - DISORIENTATION [None]
  - DISTURBANCE IN ATTENTION [None]
  - DIZZINESS [None]
  - FEELING ABNORMAL [None]
  - HEART RATE INCREASED [None]
  - INSOMNIA [None]
  - MEMORY IMPAIRMENT [None]
  - PANIC ATTACK [None]
  - PARAESTHESIA [None]
  - SOCIAL AVOIDANT BEHAVIOUR [None]
  - SUICIDAL IDEATION [None]
  - TREMOR [None]
  - TUNNEL VISION [None]
  - VISION BLURRED [None]
